FAERS Safety Report 8205861-6 (Version None)
Quarter: 2012Q1

REPORT INFORMATION
  Report Type: 
  Country: None (occurrence: None)
  Receive Date: 20120309
  Receipt Date: 20120227
  Transmission Date: 20120608
  Serious: Yes (Hospitalization, Other)
  Sender: FDA-Public Use
  Company Number: 2011SP012083

PATIENT
  Age: 25 Year
  Sex: Female
  Weight: 69.8539 kg

DRUGS (1)
  1. NUVARING [Suspect]
     Indication: CONTRACEPTION
     Dates: start: 20061001, end: 20090326

REACTIONS (25)
  - TACHYCARDIA [None]
  - GENITAL DISCHARGE [None]
  - PELVIC PAIN [None]
  - PULMONARY INFARCTION [None]
  - MULTIPLE INJURIES [None]
  - LABYRINTHITIS [None]
  - CONTUSION [None]
  - CRANIOCEREBRAL INJURY [None]
  - HEADACHE [None]
  - UPPER RESPIRATORY TRACT INFECTION [None]
  - NIGHT SWEATS [None]
  - SYNCOPE [None]
  - OVARIAN CYST [None]
  - DECREASED APPETITE [None]
  - MUSCULOSKELETAL PAIN [None]
  - POST-TRAUMATIC NECK SYNDROME [None]
  - PALPITATIONS [None]
  - PULMONARY EMBOLISM [None]
  - DEEP VEIN THROMBOSIS [None]
  - DIZZINESS [None]
  - PROTHROMBIN TIME PROLONGED [None]
  - CONCUSSION [None]
  - MOBILITY DECREASED [None]
  - HYPERCOAGULATION [None]
  - LIGAMENT SPRAIN [None]
